FAERS Safety Report 10538540 (Version 2)
Quarter: 2014Q4

REPORT INFORMATION
  Report Type: Spontaneous
  Country: US (occurrence: US)
  Receive Date: 20141023
  Receipt Date: 20141023
  Transmission Date: 20150529
  Serious: Yes (Hospitalization, Other)
  Sender: FDA-Public Use
  Company Number: US-GLAXOSMITHKLINE-A0733530A

PATIENT
  Age: 59 Year
  Sex: Male
  Weight: 126 kg

DRUGS (13)
  1. CLOPIDOGREL BISULFATE. [Concomitant]
     Active Substance: CLOPIDOGREL BISULFATE
  2. NITROGLYCERIN. [Concomitant]
     Active Substance: NITROGLYCERIN
  3. SIMVASTATIN. [Concomitant]
     Active Substance: SIMVASTATIN
  4. LOSARTAN [Concomitant]
     Active Substance: LOSARTAN
  5. TRAZODONE [Concomitant]
     Active Substance: TRAZODONE HYDROCHLORIDE
  6. HCTZ [Concomitant]
     Active Substance: HYDROCHLOROTHIAZIDE
  7. AVANDIA [Suspect]
     Active Substance: ROSIGLITAZONE MALEATE
     Indication: TYPE 2 DIABETES MELLITUS
     Dosage: 8 MG, QD
     Route: 048
     Dates: start: 20050801, end: 20070712
  8. ROSIGLITAZONE MALEATE. [Suspect]
     Active Substance: ROSIGLITAZONE MALEATE
     Indication: DIABETES MELLITUS
     Dosage: 8 MG, QD
     Route: 048
     Dates: start: 20050824, end: 20070420
  9. CITALOPRAM [Concomitant]
     Active Substance: CITALOPRAM HYDROBROMIDE
  10. GLIPIZIDE. [Concomitant]
     Active Substance: GLIPIZIDE
  11. FUROSEMIDE. [Concomitant]
     Active Substance: FUROSEMIDE
  12. METOPROLOL [Concomitant]
     Active Substance: METOPROLOL
  13. OMEPRAZOLE. [Concomitant]
     Active Substance: OMEPRAZOLE

REACTIONS (6)
  - Angina unstable [Unknown]
  - Cardiac failure congestive [Unknown]
  - Arthritis [Unknown]
  - Acute myocardial infarction [Not Recovered/Not Resolved]
  - Cardiac valve disease [Unknown]
  - Haemoptysis [Unknown]

NARRATIVE: CASE EVENT DATE: 20060825
